FAERS Safety Report 8455238-3 (Version None)
Quarter: 2012Q2

REPORT INFORMATION
  Report Type: 
  Country: None (occurrence: None)
  Receive Date: 20120613
  Receipt Date: 20120529
  Transmission Date: 20120825
  Serious: Yes (Hospitalization)
  Sender: FDA-Public Use
  Company Number: JPI-P-021728

PATIENT
  Age: 31 Year
  Sex: Male

DRUGS (4)
  1. XYREM [Suspect]
     Indication: SOMNOLENCE
     Dosage: SEE IMAGE
     Route: 048
     Dates: start: 20110826
  2. XYREM [Suspect]
     Indication: NARCOLEPSY
     Dosage: SEE IMAGE
     Route: 048
     Dates: start: 20110826
  3. XYREM [Suspect]
     Indication: SOMNOLENCE
     Dosage: SEE IMAGE
     Route: 048
     Dates: start: 20110623
  4. XYREM [Suspect]
     Indication: NARCOLEPSY
     Dosage: SEE IMAGE
     Route: 048
     Dates: start: 20110623

REACTIONS (11)
  - INSOMNIA [None]
  - HANGOVER [None]
  - NAUSEA [None]
  - DIARRHOEA [None]
  - WITHDRAWAL SYNDROME [None]
  - ANXIETY [None]
  - DRY MOUTH [None]
  - ALCOHOL ABUSE [None]
  - TREMOR [None]
  - UNRESPONSIVE TO STIMULI [None]
  - OVERDOSE [None]
